FAERS Safety Report 6583220-X (Version None)
Quarter: 2010Q1

REPORT INFORMATION
  Report Type: 
  Country: None (occurrence: None)
  Receive Date: 20100216
  Receipt Date: 20100212
  Transmission Date: 20100710
  Serious: Yes (Death, Hospitalization)
  Sender: FDA-Public Use
  Company Number: TR-ROCHE-582771

PATIENT
  Sex: Female
  Weight: 59 kg

DRUGS (3)
  1. BEVACIZUMAB [Suspect]
     Dosage: FORM: 15 MG/KG; LAST DOSE PRIOR TO EVENT ON 11 AUGUST 2008, THERAPY PERMANTELY DISCONTINUED.
     Route: 042
     Dates: start: 20080110, end: 20080901
  2. CAPECITABINE [Suspect]
     Dosage: DOSAGE FORM: 2000 MG/M2; LAST DOSE PRIOR TO EVENT ON 5 MARCH 2008.
     Route: 048
     Dates: start: 20080110
  3. DOCETAXEL [Suspect]
     Dosage: DOSAGE FORM: 75 MG/M2; LAST DOSE PRIOR TO EVENT ON 5 JUNE 2008.
     Route: 042
     Dates: start: 20080110

REACTIONS (4)
  - ANAL ABSCESS [None]
  - ANAL INFECTION [None]
  - INFECTION [None]
  - SKIN NECROSIS [None]
